FAERS Safety Report 19118755 (Version 2)
Quarter: 2021Q2

REPORT INFORMATION
  Report Type: Report from Study
  Country: CA (occurrence: CA)
  Receive Date: 20210410
  Receipt Date: 20210422
  Transmission Date: 20210717
  Serious: Yes (Other)
  Sender: FDA-Public Use
  Company Number: CA-TAKEDA-2021TUS021708

PATIENT
  Age: 67 Year
  Sex: Male

DRUGS (5)
  1. VIT D [Concomitant]
     Active Substance: VITAMIN D NOS
     Dosage: 10000 MILLIGRAM, 1/WEEK
  2. HCTZ [Concomitant]
     Active Substance: HYDROCHLOROTHIAZIDE
     Dosage: 10 MILLIGRAM, QD
  3. AVASTIN [Concomitant]
     Active Substance: BEVACIZUMAB
     Dosage: 10 MILLIGRAM, QD
  4. RAMIPRIL. [Concomitant]
     Active Substance: RAMIPRIL
     Dosage: 10 MILLIGRAM, QD
  5. VEDOLIZUMAB [Suspect]
     Active Substance: VEDOLIZUMAB
     Indication: CROHN^S DISEASE
     Dosage: 300 MILLIGRAM
     Route: 042
     Dates: start: 20200704

REACTIONS (3)
  - Prostate cancer [Unknown]
  - Stress [Unknown]
  - Diarrhoea [Recovered/Resolved]
